FAERS Safety Report 12331327 (Version 1)
Quarter: 2016Q2

REPORT INFORMATION
  Report Type: Spontaneous
  Country: US (occurrence: US)
  Receive Date: 20160504
  Receipt Date: 20160504
  Transmission Date: 20160815
  Serious: No
  Sender: FDA-Public Use
  Company Number: US-009507513-1605USA001564

PATIENT
  Sex: Female

DRUGS (1)
  1. NEXPLANON [Suspect]
     Active Substance: ETONOGESTREL
     Indication: CONTRACEPTION
     Dosage: UNK
     Route: 059
     Dates: end: 20160502

REACTIONS (5)
  - Breast discharge [Recovering/Resolving]
  - Menstruation irregular [Recovering/Resolving]
  - Weight increased [Recovering/Resolving]
  - Complication associated with device [Recovered/Resolved]
  - Acne [Recovering/Resolving]
